FAERS Safety Report 9709498 (Version 2)
Quarter: 2013Q4

REPORT INFORMATION
  Report Type: Spontaneous
  Country: US (occurrence: US)
  Receive Date: 20131126
  Receipt Date: 20131219
  Transmission Date: 20140711
  Serious: Yes (Hospitalization, Other)
  Sender: FDA-Public Use
  Company Number: US-BIOGENIDEC-2013BI114400

PATIENT
  Age: 56 Year
  Sex: Female

DRUGS (1)
  1. TYSABRI [Suspect]
     Indication: MULTIPLE SCLEROSIS
     Route: 042
     Dates: start: 20110722

REACTIONS (3)
  - Partial seizures with secondary generalisation [Not Recovered/Not Resolved]
  - Escherichia sepsis [Recovered/Resolved]
  - Mental disorder [Not Recovered/Not Resolved]
